FAERS Safety Report 23968752 (Version 2)
Quarter: 2024Q2

REPORT INFORMATION
  Report Type: Spontaneous
  Country: GB (occurrence: GB)
  Receive Date: 20240612
  Receipt Date: 20240620
  Transmission Date: 20240715
  Serious: Yes (Death, Hospitalization, Other)
  Sender: FDA-Public Use
  Company Number: GB-MYLANLABS-2024M1051806

PATIENT
  Sex: Male

DRUGS (1)
  1. CLOZARIL [Suspect]
     Active Substance: CLOZAPINE
     Indication: Schizophrenia
     Dosage: UNK
     Route: 048
     Dates: start: 20100927

REACTIONS (7)
  - Death [Fatal]
  - Pleural effusion [Unknown]
  - Condition aggravated [Unknown]
  - Pneumothorax [Unknown]
  - Lower respiratory tract infection [Unknown]
  - Leukocytosis [Unknown]
  - Neutrophilia [Unknown]
